FAERS Safety Report 13386666 (Version 2)
Quarter: 2017Q2

REPORT INFORMATION
  Report Type: Spontaneous
  Country: FR (occurrence: FR)
  Receive Date: 20170330
  Receipt Date: 20170518
  Transmission Date: 20170830
  Serious: Yes (Death, Hospitalization, Other)
  Sender: FDA-Public Use
  Company Number: FR-ACCORD-049634

PATIENT
  Age: 63 Year
  Sex: Male

DRUGS (5)
  1. METHYLPREDNISOLONE. [Concomitant]
     Active Substance: METHYLPREDNISOLONE
  2. LEUPRORELIN/LEUPRORELIN ACETATE [Concomitant]
  3. CODEINE/PARACETAMOL [Concomitant]
  4. CALCIUM/COLECALCIFEROL [Concomitant]
  5. DOCETAXEL ACCORD [Suspect]
     Active Substance: DOCETAXEL
     Indication: PROSTATE CANCER
     Dosage: 7.2381 MG (152 MG, 1 DF EVERY 21 DAYS)
     Route: 042
     Dates: start: 20161208, end: 20170209

REACTIONS (6)
  - Oedema peripheral [Not Recovered/Not Resolved]
  - Death [Fatal]
  - Abdominal pain [Recovered/Resolved]
  - Abdominal distension [Unknown]
  - Diarrhoea [Recovered/Resolved]
  - General physical health deterioration [Unknown]

NARRATIVE: CASE EVENT DATE: 20170209
